FAERS Safety Report 6403272-7 (Version None)
Quarter: 2009Q4

REPORT INFORMATION
  Report Type: 
  Country: None (occurrence: None)
  Receive Date: 20091016
  Receipt Date: 20091009
  Transmission Date: 20100525
  Serious: Yes (Other)
  Sender: FDA-Public Use
  Company Number: SE-JNJFOC-20091002628

PATIENT
  Sex: Female

DRUGS (2)
  1. IMODIUM [Suspect]
     Route: 048
  2. IMODIUM [Suspect]
     Indication: DRUG USE FOR UNKNOWN INDICATION
     Dosage: 0.2MG/ML/}40ML DAILY
     Route: 048

REACTIONS (3)
  - INTENTIONAL DRUG MISUSE [None]
  - LIVER DISORDER [None]
  - SERUM FERRITIN INCREASED [None]
